FAERS Safety Report 17536843 (Version 2)
Quarter: 2020Q1

REPORT INFORMATION
  Report Type: Report from Study
  Country: PA (occurrence: PA)
  Receive Date: 20200313
  Receipt Date: 20200319
  Transmission Date: 20200409
  Serious: Yes (Other)
  Sender: FDA-Public Use
  Company Number: PHHY2018PA053060

PATIENT
  Age: 29 Year
  Sex: Female

DRUGS (4)
  1. DUOFLEX [CARISOPRODOL/DICLOFENAC SODIUM] [Suspect]
     Active Substance: CARISOPRODOL\DICLOFENAC SODIUM
     Indication: PRODUCT USED FOR UNKNOWN INDICATION
     Dosage: UNK
     Route: 065
  2. GILENYA [Suspect]
     Active Substance: FINGOLIMOD HYDROCHLORIDE
     Indication: MULTIPLE SCLEROSIS
     Dosage: UNK
     Route: 065
  3. GILENYA [Suspect]
     Active Substance: FINGOLIMOD HYDROCHLORIDE
     Dosage: 0.5 MG, QD
     Route: 048
     Dates: start: 20180219
  4. GILENYA [Suspect]
     Active Substance: FINGOLIMOD HYDROCHLORIDE
     Dosage: 0.5 MG
     Route: 065

REACTIONS (23)
  - Renal disorder [Unknown]
  - Ocular discomfort [Unknown]
  - Depression [Unknown]
  - Mydriasis [Unknown]
  - Sleep disorder [Unknown]
  - Dependence [Unknown]
  - Mental disorder [Unknown]
  - Pain [Recovered/Resolved with Sequelae]
  - Metamorphopsia [Unknown]
  - Malaise [Recovered/Resolved with Sequelae]
  - Eye pain [Unknown]
  - Anger [Recovered/Resolved with Sequelae]
  - Neck pain [Unknown]
  - Vision blurred [Unknown]
  - Arthralgia [Unknown]
  - Sensory loss [Unknown]
  - Renal pain [Recovered/Resolved with Sequelae]
  - Back pain [Unknown]
  - Headache [Unknown]
  - Eye swelling [Unknown]
  - Muscle spasms [Unknown]
  - Mood altered [Unknown]
  - Abdominal pain upper [Unknown]

NARRATIVE: CASE EVENT DATE: 20190101
